FAERS Safety Report 20660230 (Version 2)
Quarter: 2022Q2

REPORT INFORMATION
  Report Type: Spontaneous
  Country: US (occurrence: US)
  Receive Date: 20220331
  Receipt Date: 20220411
  Transmission Date: 20220721
  Serious: Yes (Hospitalization)
  Sender: FDA-Public Use
  Company Number: US-PFIZER INC-202200483629

PATIENT
  Age: 48 Year
  Sex: Male

DRUGS (1)
  1. VORICONAZOLE [Suspect]
     Active Substance: VORICONAZOLE
     Indication: Bronchopulmonary aspergillosis
     Dosage: 250 MG, 2X/DAY (VORICONAZOLE, 200 MG, PO BID, QTY 60; VORICONAZOLE 50 MG, PO BID, QTY 60)
     Route: 048

REACTIONS (2)
  - Illness [Unknown]
  - Off label use [Unknown]
